FAERS Safety Report 16669594 (Version 1)
Quarter: 2019Q3

REPORT INFORMATION
  Report Type: Spontaneous
  Country: US (occurrence: US)
  Receive Date: 20190619
  Receipt Date: 20190619
  Transmission Date: 20191004
  Serious: Yes (Life-Threatening, Hospitalization)
  Sender: FDA-Public Use
  Company Number: None

PATIENT
  Age: 51 Year
  Sex: Female
  Weight: 131.54 kg

DRUGS (14)
  1. TRAMADOL. [Concomitant]
     Active Substance: TRAMADOL
  2. FLUTICASONE FUROATE SPRAY [Concomitant]
  3. ALPRAZOLAM. [Concomitant]
     Active Substance: ALPRAZOLAM
  4. HYDROCHLOROTHIAZIDE 12.5MG [Suspect]
     Active Substance: HYDROCHLOROTHIAZIDE
     Indication: BLOOD PRESSURE INCREASED
     Dosage: ?          QUANTITY:30 DF DOSAGE FORM;?
     Route: 048
     Dates: start: 20180425
  5. TRAZODONE [Concomitant]
     Active Substance: TRAZODONE HYDROCHLORIDE
  6. MOTELUKAST SODIUM [Concomitant]
     Active Substance: MONTELUKAST SODIUM
  7. FLUTICASONE PROPIONATE (INHALER) [Concomitant]
  8. ALBUTEROL SULFATE (PROAIR HFA) [Concomitant]
  9. TORSEMIDE. [Concomitant]
     Active Substance: TORSEMIDE
  10. METOPROLOL SUCCINATE. [Concomitant]
     Active Substance: METOPROLOL SUCCINATE
  11. QINAPRIL [Concomitant]
  12. AMBIEN [Concomitant]
     Active Substance: ZOLPIDEM TARTRATE
  13. PAROXETINE. [Concomitant]
     Active Substance: PAROXETINE
  14. KLOR-CON [Concomitant]
     Active Substance: POTASSIUM CHLORIDE

REACTIONS (7)
  - Condition aggravated [None]
  - Product label confusion [None]
  - Nausea [None]
  - Recalled product administered [None]
  - Product dispensing error [None]
  - Chest pain [None]
  - Hypertension [None]

NARRATIVE: CASE EVENT DATE: 20180822
